FAERS Safety Report 6404070-0 (Version None)
Quarter: 2009Q4

REPORT INFORMATION
  Report Type: 
  Country: None (occurrence: None)
  Receive Date: 20091016
  Receipt Date: 20091005
  Transmission Date: 20100525
  Serious: Yes (Hospitalization)
  Sender: FDA-Public Use
  Company Number: AT-JNJFOC-20090805698

PATIENT
  Age: 44 Year
  Sex: Male
  Weight: 120 kg

DRUGS (9)
  1. STELARA [Suspect]
     Indication: PSORIASIS
     Route: 058
  2. ALLOPURINOL [Interacting]
     Indication: DRUG USE FOR UNKNOWN INDICATION
     Route: 065
  3. THEOPHYLLINE [Interacting]
     Indication: DRUG USE FOR UNKNOWN INDICATION
     Route: 065
  4. BERODUAL [Concomitant]
     Route: 065
  5. PRAVASTATIN [Concomitant]
     Route: 065
  6. NORVASC [Concomitant]
     Route: 065
  7. LASIX [Concomitant]
     Route: 065
  8. LASILACTON [Concomitant]
     Dosage: 20 MG/100 MG
     Route: 065
  9. ASPIRIN [Concomitant]
     Route: 065

REACTIONS (3)
  - ANAEMIA [None]
  - DRUG INTERACTION [None]
  - OESOPHAGEAL CANDIDIASIS [None]
